FAERS Safety Report 15773381 (Version 5)
Quarter: 2019Q4

REPORT INFORMATION
  Report Type: Not Available
  Country: US (occurrence: US)
  Receive Date: 20181228
  Receipt Date: 20191231
  Transmission Date: 20200122
  Serious: No
  Sender: FDA-Public Use
  Company Number: US-NEUROCRINE BIOSCIENCES INC.-2018NBI03618

PATIENT
  Age: 53 Year
  Sex: Female

DRUGS (21)
  1. INGREZZA [Suspect]
     Active Substance: VALBENAZINE
     Indication: TARDIVE DYSKINESIA
     Route: 048
     Dates: start: 20181211, end: 20181218
  2. CRANBERRY SUPPLEMENTS [Concomitant]
     Indication: ROUTINE HEALTH MAINTENANCE
  3. OMEGA FATTY ACIDS FISH OIL [Concomitant]
     Indication: DYSKINESIA
  4. INGREZZA [Suspect]
     Active Substance: VALBENAZINE
     Dosage: AT NIGHT
     Route: 048
     Dates: start: 20181219
  5. LATUDA [Concomitant]
     Active Substance: LURASIDONE HYDROCHLORIDE
     Indication: DEPRESSION
  6. ALPRAZOLAM. [Concomitant]
     Active Substance: ALPRAZOLAM
     Indication: ANXIETY DISORDER
     Dosage: 0.5 MG BUT BREAKS IT IN HALF; TAKES AS NEEDED FOR ANXIETY
  7. VITAMIN C [Concomitant]
     Active Substance: ASCORBIC ACID
  8. TRIPLE FLEX [Concomitant]
  9. CLARITIN [Concomitant]
     Active Substance: LORATADINE
     Indication: HYPERSENSITIVITY
     Dosage: AS NEEDED
  10. VALTREX [Concomitant]
     Active Substance: VALACYCLOVIR HYDROCHLORIDE
     Indication: ORAL HERPES
  11. FLONASE [Concomitant]
     Active Substance: FLUTICASONE PROPIONATE
     Indication: RHINITIS ALLERGIC
  12. SYNTHROID [Concomitant]
     Active Substance: LEVOTHYROXINE SODIUM
     Indication: HYPOTHYROIDISM
     Dosage: IN MORNING
  13. PROBIOTIC [Concomitant]
     Active Substance: PROBIOTICS NOS
  14. ALEVE [Concomitant]
     Active Substance: NAPROXEN SODIUM
     Indication: TARDIVE DYSKINESIA
     Dosage: AS NEEDED
  15. PROAIR HFA [Concomitant]
     Active Substance: ALBUTEROL SULFATE
     Indication: HYPERSENSITIVITY
  16. PROAIR HFA [Concomitant]
     Active Substance: ALBUTEROL SULFATE
     Indication: ASTHMA
  17. LAMICTAL [Concomitant]
     Active Substance: LAMOTRIGINE
     Indication: AFFECTIVE DISORDER
     Dosage: 200 MG 1.5 TABLETS (300 MG DAILY)
  18. VITAMIN E [Concomitant]
     Active Substance: .ALPHA.-TOCOPHEROL
     Indication: DYSKINESIA
  19. WELLBUTRIN [Concomitant]
     Active Substance: BUPROPION HYDROCHLORIDE
     Indication: DEPRESSION
  20. LIPITOR [Concomitant]
     Active Substance: ATORVASTATIN CALCIUM
     Indication: BLOOD CHOLESTEROL INCREASED
     Dosage: AT BEDTIME
     Dates: start: 20190313
  21. LATUDA [Concomitant]
     Active Substance: LURASIDONE HYDROCHLORIDE
     Indication: BIPOLAR DISORDER
     Dosage: 20 MG AND 80 MG TABLETS TAKE TOGETHER DAILY WITH DINNER AT NIGHT

REACTIONS (4)
  - Tardive dyskinesia [Unknown]
  - Chromaturia [Recovered/Resolved]
  - Nerve compression [Unknown]
  - Fatigue [Unknown]

NARRATIVE: CASE EVENT DATE: 20181212
